FAERS Safety Report 7095792-X (Version None)
Quarter: 2010Q4

REPORT INFORMATION
  Report Type: 
  Country: None (occurrence: None)
  Receive Date: 20101111
  Receipt Date: 20101102
  Transmission Date: 20110411
  Serious: Yes (Hospitalization)
  Sender: FDA-Public Use
  Company Number: FR-ASTRAZENECA-2010SE52272

PATIENT
  Age: 30606 Day
  Sex: Male

DRUGS (6)
  1. TENORMIN [Suspect]
     Route: 048
     Dates: end: 20090205
  2. CRESTOR [Suspect]
     Route: 048
     Dates: end: 20090205
  3. AUGMENTIN '125' [Suspect]
     Indication: BRONCHITIS
     Route: 048
     Dates: start: 20090101, end: 20090101
  4. PERINDOPRIL ERBUMINE [Suspect]
     Route: 048
     Dates: end: 20090205
  5. LASIX [Suspect]
     Route: 048
     Dates: end: 20090205
  6. KARDEGIC [Suspect]
     Route: 048
     Dates: end: 20090205

REACTIONS (2)
  - CHOLESTASIS [None]
  - CYTOLYTIC HEPATITIS [None]
